FAERS Safety Report 21664524 (Version 1)
Quarter: 2022Q4

REPORT INFORMATION
  Report Type: Spontaneous
  Country: GB (occurrence: GB)
  Receive Date: 20221130
  Receipt Date: 20221130
  Transmission Date: 20230113
  Serious: Yes (Hospitalization, Other)
  Sender: FDA-Public Use
  Company Number: GB-MHRA-MED-202202281556029590-RSSEG

PATIENT
  Age: 61 Year
  Sex: Female

DRUGS (1)
  1. RISPERDAL [Suspect]
     Active Substance: RISPERIDONE
     Indication: Adverse drug reaction
     Dosage: 2MG 1-2 AT NIGHT
     Route: 065

REACTIONS (2)
  - Hospitalisation [Unknown]
  - Medication error [Unknown]
